FAERS Safety Report 14908898 (Version 3)
Quarter: 2018Q3

REPORT INFORMATION
  Report Type: Spontaneous
  Country: BG (occurrence: BG)
  Receive Date: 20180517
  Receipt Date: 20180801
  Transmission Date: 20181010
  Serious: Yes (Life-Threatening, Hospitalization, Other)
  Sender: FDA-Public Use
  Company Number: BG-MYLANLABS-2018M1019363

PATIENT
  Age: 63 Year
  Sex: Male

DRUGS (3)
  1. AZITHROMYCIN ANHYDROUS. [Suspect]
     Active Substance: AZITHROMYCIN ANHYDROUS
     Indication: RASH
  2. AZITHROMYCIN ANHYDROUS. [Suspect]
     Active Substance: AZITHROMYCIN ANHYDROUS
     Indication: ARTHRALGIA
  3. AZITHROMYCIN ANHYDROUS. [Suspect]
     Active Substance: AZITHROMYCIN ANHYDROUS
     Indication: PYREXIA
     Dosage: UNK
     Route: 065

REACTIONS (19)
  - Peripheral swelling [Unknown]
  - Nikolsky^s sign [Unknown]
  - Hypotension [Unknown]
  - Pain in extremity [Unknown]
  - Skin necrosis [Recovered/Resolved]
  - Oral mucosal exfoliation [Unknown]
  - Rash [Unknown]
  - Hypoproteinaemia [Unknown]
  - Penile blister [Unknown]
  - Penile haemorrhage [Unknown]
  - Stevens-Johnson syndrome [Unknown]
  - Toxic epidermal necrolysis [Recovered/Resolved]
  - Tachycardia [Unknown]
  - Penile ulceration [Unknown]
  - Rales [Unknown]
  - Mucosal necrosis [Unknown]
  - Oral mucosa erosion [Unknown]
  - Leukocytosis [Unknown]
  - Dermatitis bullous [Unknown]

NARRATIVE: CASE EVENT DATE: 201505
